FAERS Safety Report 7411243-7 (Version None)
Quarter: 2011Q2

REPORT INFORMATION
  Report Type: 
  Country: None (occurrence: None)
  Receive Date: 20110413
  Receipt Date: 20100430
  Transmission Date: 20111010
  Serious: Yes (Other)
  Sender: FDA-Public Use
  Company Number: US-BRISTOL-MYERS SQUIBB COMPANY-15072127

PATIENT
  Age: 62 Year
  Sex: Male

DRUGS (2)
  1. BENADRYL [Concomitant]
     Indication: PREMEDICATION
  2. ERBITUX [Suspect]
     Indication: HEAD AND NECK CANCER
     Dates: start: 20100219

REACTIONS (1)
  - INFUSION RELATED REACTION [None]
